FAERS Safety Report 7480018-5 (Version None)
Quarter: 2011Q2

REPORT INFORMATION
  Report Type: 
  Country: None (occurrence: None)
  Receive Date: 20110516
  Receipt Date: 20110429
  Transmission Date: 20111010
  Serious: No
  Sender: FDA-Public Use
  Company Number: US-BIOGENIDEC-2010BI013807

PATIENT
  Age: 39 Year
  Sex: Female

DRUGS (3)
  1. AVONEX [Concomitant]
     Indication: MULTIPLE SCLEROSIS
     Route: 030
     Dates: start: 20041101
  2. AVONEX [Concomitant]
     Route: 030
     Dates: start: 20090131
  3. TYSABRI [Suspect]
     Indication: MULTIPLE SCLEROSIS
     Route: 042
     Dates: start: 20100212

REACTIONS (14)
  - MYALGIA [None]
  - FALL [None]
  - VULVOVAGINAL MYCOTIC INFECTION [None]
  - MALAISE [None]
  - URTICARIA [None]
  - NASOPHARYNGITIS [None]
  - PRURITUS [None]
  - NAUSEA [None]
  - VAGINITIS BACTERIAL [None]
  - FLUSHING [None]
  - ARTHRALGIA [None]
  - BALANCE DISORDER [None]
  - FATIGUE [None]
  - FIBROMYALGIA [None]
